FAERS Safety Report 15267633 (Version 1)
Quarter: 2018Q3

REPORT INFORMATION
  Report Type: Spontaneous
  Country: US (occurrence: US)
  Receive Date: 20180724
  Receipt Date: 20180724
  Transmission Date: 20181010
  Serious: Yes (Life-Threatening, Hospitalization, Other)
  Sender: FDA-Public Use
  Company Number: None

PATIENT
  Sex: Female
  Weight: 90 kg

DRUGS (10)
  1. VITAMIN D [Concomitant]
     Active Substance: CHOLECALCIFEROL
  2. NAPROXEN. [Concomitant]
     Active Substance: NAPROXEN
  3. HYDROXZY HCL [Concomitant]
  4. MULTI VITAMIN [Concomitant]
     Active Substance: VITAMINS
  5. FISH OIL [Concomitant]
     Active Substance: FISH OIL
  6. DULOXETINE. [Concomitant]
     Active Substance: DULOXETINE
  7. BACLOFEN. [Concomitant]
     Active Substance: BACLOFEN
  8. AMITRIPTYLINE [Concomitant]
     Active Substance: AMITRIPTYLINE
  9. LATUDA [Suspect]
     Active Substance: LURASIDONE HYDROCHLORIDE
     Indication: DEPRESSION
     Dosage: ?          QUANTITY:1 TABLET(S);?
     Route: 048
     Dates: start: 20170831, end: 20180331
  10. TRAMADOL HCL [Concomitant]
     Active Substance: TRAMADOL HYDROCHLORIDE

REACTIONS (15)
  - Incorrect dose administered [None]
  - Personality change [None]
  - Incoherent [None]
  - Feeling abnormal [None]
  - Amnesia [None]
  - Gait disturbance [None]
  - Mental impairment [None]
  - Impaired self-care [None]
  - Confusional state [None]
  - Anxiety [None]
  - Abnormal behaviour [None]
  - Aggression [None]
  - Impaired work ability [None]
  - Overdose [None]
  - Restlessness [None]
